FAERS Safety Report 17501215 (Version 1)
Quarter: 2020Q1

REPORT INFORMATION
  Report Type: Spontaneous
  Country: BR (occurrence: BR)
  Receive Date: 20200305
  Receipt Date: 20200305
  Transmission Date: 20200409
  Serious: Yes (Other)
  Sender: FDA-Public Use
  Company Number: NVSC2019BR087472

PATIENT
  Sex: Female
  Weight: 53 kg

DRUGS (3)
  1. MIFLASONA [Suspect]
     Active Substance: BECLOMETHASONE DIPROPIONATE
     Indication: RHEUMATIC FEVER
     Dosage: 1 DF, QD (1 PUFF)
     Route: 055
  2. MIFLONIDE [Suspect]
     Active Substance: BUDESONIDE
     Indication: RHEUMATIC FEVER
     Dosage: 1 DF, QD (1 PUFF)
     Route: 055
  3. ENALAPRIL [Concomitant]
     Active Substance: ENALAPRIL
     Indication: HYPERTENSION
     Dosage: 1 DF, Q8H (5 MG)
     Route: 048

REACTIONS (4)
  - Adjustment disorder [Not Recovered/Not Resolved]
  - Product use in unapproved indication [Unknown]
  - Aphthous ulcer [Unknown]
  - Eating disorder [Not Recovered/Not Resolved]
